FAERS Safety Report 8375944-9 (Version None)
Quarter: 2012Q2

REPORT INFORMATION
  Report Type: 
  Country: None (occurrence: None)
  Receive Date: 20120522
  Receipt Date: 20120509
  Transmission Date: 20120825
  Serious: Yes (Death)
  Sender: FDA-Public Use
  Company Number: JP-ASTELLAS-2012US004714

PATIENT
  Age: 80 Year
  Sex: Male

DRUGS (2)
  1. DORIPENEM MONOHYDRATE [Concomitant]
     Indication: PRODUCT USED FOR UNKNOWN INDICATION
     Dosage: UNK
     Route: 065
  2. AMBISOME [Suspect]
     Indication: CANDIDIASIS
     Dosage: 100 MG, UID/QD
     Route: 041

REACTIONS (1)
  - ASPHYXIA [None]
